FAERS Safety Report 21963190 (Version 1)
Quarter: 2023Q1

REPORT INFORMATION
  Report Type: Report from Study
  Country: US (occurrence: US)
  Receive Date: 20230207
  Receipt Date: 20230207
  Transmission Date: 20230418
  Serious: No
  Sender: FDA-Public Use
  Company Number: US-AMRYT PHARMACEUTICALS DAC-AEGR006076

PATIENT
  Age: 11 Year
  Sex: Male
  Weight: 42.585 kg

DRUGS (4)
  1. MYALEPT [Suspect]
     Active Substance: METRELEPTIN
     Indication: Lipodystrophy acquired
     Dosage: UNK
     Dates: start: 20221007
  2. MYALEPT [Suspect]
     Active Substance: METRELEPTIN
     Dosage: UNK
     Dates: start: 20221110
  3. MYALEPT [Suspect]
     Active Substance: METRELEPTIN
     Dosage: 0.5 ML, 2.5 MILLIGRAM, QD
     Route: 058
  4. INSULIN NOS [Concomitant]
     Active Substance: INSULIN NOS
     Indication: Product used for unknown indication

REACTIONS (6)
  - Nervousness [Unknown]
  - Blood glucose increased [Unknown]
  - Nasopharyngitis [Unknown]
  - Illness [Unknown]
  - Increased appetite [Recovering/Resolving]
  - Weight decreased [Unknown]

NARRATIVE: CASE EVENT DATE: 20221007
